FAERS Safety Report 11628340 (Version 3)
Quarter: 2015Q4

REPORT INFORMATION
  Report Type: Spontaneous
  Country: CA (occurrence: CA)
  Receive Date: 20151014
  Receipt Date: 20151119
  Transmission Date: 20160304
  Serious: Yes (Hospitalization)
  Sender: FDA-Public Use
  Company Number: CA-TEVA-598149USA

PATIENT
  Age: 50 Year
  Sex: Female

DRUGS (11)
  1. NAPROSYN [Concomitant]
     Active Substance: NAPROXEN
  2. TEVA FENTANYL [Suspect]
     Active Substance: FENTANYL
     Dosage: 1 DOSAGE FORMS DAILY; 1 PATCH (STRENGTH 12.5MCG/H) EVERY 3 DAYS
     Route: 061
     Dates: start: 20150805
  3. LYRICA [Concomitant]
     Active Substance: PREGABALIN
  4. COLACE [Concomitant]
     Active Substance: DOCUSATE SODIUM
  5. TYLENOL [Concomitant]
     Active Substance: ACETAMINOPHEN
  6. TEVA FENTANYL [Suspect]
     Active Substance: FENTANYL
     Indication: CANCER PAIN
     Dosage: 1 DOSAGE FORMS DAILY; 1 PATCH (STRENGTH 50MCG/H) EVERY 3 DAYS
     Route: 061
     Dates: start: 20150827, end: 20150925
  7. LAX A DAY [Concomitant]
  8. TEVA FENTANYL [Suspect]
     Active Substance: FENTANYL
     Dosage: 1 DOSAGE FORMS DAILY; 1 PATCH (STRENGTH 25MCG/H) EVERY 3 DAYS
     Route: 061
     Dates: start: 201508
  9. STATEX [Concomitant]
     Active Substance: MORPHINE SULFATE
     Dosage: 240 MILLIGRAM DAILY; 10MG EVERY 1H, IF NEEDED
  10. FRAGMIN [Concomitant]
     Active Substance: DALTEPARIN SODIUM
  11. DEXILANT [Concomitant]
     Active Substance: DEXLANSOPRAZOLE

REACTIONS (4)
  - Product adhesion issue [Unknown]
  - Neoplasm malignant [Unknown]
  - Product colour issue [Unknown]
  - Drug ineffective [Unknown]
